FAERS Safety Report 19370676 (Version 1)
Quarter: 2021Q2

REPORT INFORMATION
  Report Type: Spontaneous
  Country: FR (occurrence: FR)
  Receive Date: 20210604
  Receipt Date: 20210604
  Transmission Date: 20210717
  Serious: Yes (Other)
  Sender: FDA-Public Use
  Company Number: FR-TEVA-2021-FR-1917504

PATIENT
  Age: 74 Year
  Sex: Female
  Weight: 53 kg

DRUGS (8)
  1. AMOXICILLINE [Suspect]
     Active Substance: AMOXICILLIN
     Indication: ANTIBIOTIC THERAPY
     Dosage: 2GRAM
     Route: 048
     Dates: start: 20210426, end: 20210505
  2. PRAVASTATINE SODIQUE [Concomitant]
     Active Substance: PRAVASTATIN SODIUM
     Dosage: 20MILLIGRAM
     Route: 048
     Dates: start: 201905
  3. ACARBOSE. [Concomitant]
     Active Substance: ACARBOSE
     Dosage: 300MILLIGRAM
     Route: 048
     Dates: start: 201905
  4. VENLAFAXINE [Concomitant]
     Active Substance: VENLAFAXINE HYDROCHLORIDE
     Dosage: 75MILLIGRAM
     Route: 048
     Dates: start: 201905
  5. PANTOPRAZOLE [Suspect]
     Active Substance: PANTOPRAZOLE
     Indication: GASTRITIS
     Dosage: THERAPY END DATE :ASKU:UNIT DOSE:80MILLIGRAM
     Route: 048
     Dates: start: 20210410
  6. METFORMINE [Concomitant]
     Active Substance: METFORMIN HYDROCHLORIDE
     Dosage: 1000MILLIGRAM
     Route: 048
     Dates: start: 201905
  7. BISOPROLOL (FUMARATE ACIDE DE) [Concomitant]
     Active Substance: BISOPROLOL FUMARATE
     Dosage: 2.5MILLIGRAM
     Route: 048
     Dates: start: 201905
  8. CLARITHROMYCINE [Suspect]
     Active Substance: CLARITHROMYCIN
     Indication: ANTIBIOTIC THERAPY
     Dosage: 1GRAM
     Route: 048
     Dates: start: 20210426, end: 20210505

REACTIONS (2)
  - Behaviour disorder [Recovering/Resolving]
  - Transaminases increased [Not Recovered/Not Resolved]

NARRATIVE: CASE EVENT DATE: 20210501
